FAERS Safety Report 15613126 (Version 1)
Quarter: 2018Q4

REPORT INFORMATION
  Report Type: Spontaneous
  Country: US (occurrence: US)
  Receive Date: 20181113
  Receipt Date: 20181113
  Transmission Date: 20190205
  Serious: Yes (Hospitalization, Other)
  Sender: FDA-Public Use
  Company Number: US-ABBVIE-18S-163-2546696-00

PATIENT
  Sex: Female
  Weight: 63.5 kg

DRUGS (10)
  1. HYDROXYZINE PAMOATE. [Suspect]
     Active Substance: HYDROXYZINE PAMOATE
     Indication: SLEEP DISORDER
     Dosage: AT BEDTIME,SWITCHED TO DIFFERENT MANUFACTURER
     Route: 048
     Dates: end: 2016
  2. PREDNISONE. [Suspect]
     Active Substance: PREDNISONE
     Route: 065
  3. SYNTHROID [Suspect]
     Active Substance: LEVOTHYROXINE SODIUM
     Indication: PRODUCT USED FOR UNKNOWN INDICATION
     Route: 048
  4. DICLOFENAC SODIUM (DICLOFENAC SODIUM) [Suspect]
     Active Substance: DICLOFENAC SODIUM
     Indication: ARTHRITIS
     Dosage: DELAYED RELEASE TABLETS USP,SWITCHED TO OTHER MANUFACTURER
     Route: 048
  5. PREDNISONE. [Suspect]
     Active Substance: PREDNISONE
     Indication: PRODUCT USED FOR UNKNOWN INDICATION
     Route: 065
     Dates: start: 2018, end: 2018
  6. FLUDROCORTISONE TEVA BARR [Suspect]
     Active Substance: FLUDROCORTISONE
     Route: 065
     Dates: start: 2018
  7. THYROID NATURE [Suspect]
     Active Substance: THYROID, UNSPECIFIED
     Indication: PRODUCT USED FOR UNKNOWN INDICATION
     Dosage: NATURE^S THYROID
     Route: 065
  8. DICLOFENAC SODIUM. [Suspect]
     Active Substance: DICLOFENAC SODIUM
     Indication: ARTHRITIS
     Route: 048
  9. FLUDROCORTISONE TEVA BARR [Suspect]
     Active Substance: FLUDROCORTISONE
     Indication: PRODUCT USED FOR UNKNOWN INDICATION
     Dosage: SWITCHED TO DIFFERENT MANUFACTURER
     Route: 065
     Dates: end: 2018
  10. FLUDROCORTISONE [Suspect]
     Active Substance: FLUDROCORTISONE
     Indication: PRODUCT USED FOR UNKNOWN INDICATION
     Route: 065

REACTIONS (12)
  - Dysstasia [Recovered/Resolved]
  - Gait inability [Recovered/Resolved]
  - Weight increased [Unknown]
  - Blister [Recovered/Resolved]
  - Mobility decreased [Recovered/Resolved]
  - Medial tibial stress syndrome [Unknown]
  - Swelling face [Unknown]
  - Adrenal insufficiency [Not Recovered/Not Resolved]
  - Food allergy [Recovered/Resolved]
  - Eye swelling [Recovered/Resolved]
  - Autoimmune thyroiditis [Unknown]
  - Stress fracture [Unknown]

NARRATIVE: CASE EVENT DATE: 2015
